FAERS Safety Report 17149057 (Version 3)
Quarter: 2020Q2

REPORT INFORMATION
  Report Type: Spontaneous
  Country: DK (occurrence: DK)
  Receive Date: 20191213
  Receipt Date: 20200612
  Transmission Date: 20200713
  Serious: Yes (Other)
  Sender: FDA-Public Use
  Company Number: DK-ACCORD-165040

PATIENT
  Age: 68 Year
  Sex: Female
  Weight: 88 kg

DRUGS (13)
  1. ROSUVASTATIN ACCORD [Suspect]
     Active Substance: ROSUVASTATIN
     Indication: HYPERCHOLESTEROLAEMIA
     Dosage: STRENGTH: 5 MG INCREASE SLOWLY FROM 5 MG TWICE A WEEK TO 4 TIMES A WEEK?OVER THE FIRST MONTH.
     Route: 048
     Dates: start: 20190403, end: 20190822
  2. KALEORID [Concomitant]
     Active Substance: POTASSIUM CHLORIDE
     Indication: MINERAL SUPPLEMENTATION
     Dosage: STRENGTH: 750 MG
     Route: 048
     Dates: start: 20150903
  3. COZAAR [Concomitant]
     Active Substance: LOSARTAN POTASSIUM
     Indication: HYPERTENSION
     Dosage: STRENGTH: 100 MG
     Route: 048
     Dates: start: 20140424
  4. FURIX [Concomitant]
     Indication: DIURETIC THERAPY
     Dosage: STRENGTH: 40 MG
     Route: 048
     Dates: start: 20150713
  5. PANTOPRAZOL KRKA [Concomitant]
     Active Substance: PANTOPRAZOLE
     Indication: GASTRIC PH DECREASED
     Dosage: STRENGTH: 40 MG
     Route: 048
  6. EZETIMIBE. [Suspect]
     Active Substance: EZETIMIBE
     Indication: HYPERCHOLESTEROLAEMIA
     Dosage: DO NOT HAVE, STRENGTH: 10 MG
     Route: 048
     Dates: start: 20190924
  7. COLESTYRAMINE [Suspect]
     Active Substance: CHOLESTYRAMINE
     Indication: HYPERCHOLESTEROLAEMIA
     Dosage: STRENGTH: 4 MG, DO NOT HAVE
     Route: 048
     Dates: start: 20191111
  8. VAGIFEM [Concomitant]
     Active Substance: ESTRADIOL
     Indication: MUCOSAL DRYNESS
     Dosage: STRENGTH: 10 UG. DOSAGE
     Route: 067
     Dates: start: 20141222
  9. MAREVAN [Concomitant]
     Active Substance: WARFARIN SODIUM
     Indication: ANTICOAGULANT THERAPY
     Dosage: STRENGTH:2.5 MG. DOSAGE: ACCORDING TO WRITTEN INSTRUCTIONS
     Route: 048
     Dates: start: 20140127
  10. IMOZOP [Concomitant]
     Active Substance: ZOPICLONE
     Indication: INSOMNIA
     Dosage: STRENGTH: 3,75 MG
     Route: 048
     Dates: start: 20160823
  11. ROSUVASTATIN ACCORD [Suspect]
     Active Substance: ROSUVASTATIN
     Indication: HYPERCHOLESTEROLAEMIA
     Dosage: STRENGTH: 5 MG., DO NOT HAVE
     Route: 048
     Dates: start: 20190403, end: 201908
  12. ATORVASTATIN/ATORVASTATIN CALCIUM [Suspect]
     Active Substance: ATORVASTATIN CALCIUM
     Indication: HYPERCHOLESTEROLAEMIA
     Dosage: STRENGTH: 10 MG. DOSE: VARYING., DO NOT HAVE
     Route: 048
     Dates: start: 20120619, end: 201909
  13. SPIRON [Concomitant]
     Indication: DIURETIC THERAPY
     Dosage: STRENGTH: 25 MG
     Route: 048
     Dates: start: 20130719

REACTIONS (1)
  - Hallucination, auditory [Recovering/Resolving]

NARRATIVE: CASE EVENT DATE: 20190614
